FAERS Safety Report 6971786-7 (Version None)
Quarter: 2010Q3

REPORT INFORMATION
  Report Type: 
  Country: None (occurrence: None)
  Receive Date: 20100903
  Receipt Date: 20100820
  Transmission Date: 20110219
  Serious: Yes (Other)
  Sender: FDA-Public Use
  Company Number: 010783

PATIENT
  Age: 45 Year
  Sex: Male

DRUGS (7)
  1. BUSULFEX [Suspect]
     Indication: STEM CELL TRANSPLANT
     Dosage: 6.4 MG/KG, IINTRAVENOUS
     Route: 042
  2. CLADRIBINE [Concomitant]
  3. CAMPATH [Concomitant]
  4. CYCLOSPORINE [Concomitant]
  5. ACYCLOVIR [Concomitant]
  6. PENICILLIN (BENZYLPENICILLIN SODIUM) [Concomitant]
  7. SULFAMETHOXAZOLE AND TRIMETHOPRIM [Concomitant]

REACTIONS (2)
  - CHIMERISM [None]
  - LEUKAEMIA RECURRENT [None]
